FAERS Safety Report 17607656 (Version 3)
Quarter: 2020Q2

REPORT INFORMATION
  Report Type: Spontaneous
  Country: US (occurrence: US)
  Receive Date: 20200331
  Receipt Date: 20200520
  Transmission Date: 20200713
  Serious: Yes (Life-Threatening, Hospitalization, Other)
  Sender: FDA-Public Use
  Company Number: US-PFIZER INC-2019340723

PATIENT
  Age: 57 Year
  Sex: Male
  Weight: 93.4 kg

DRUGS (9)
  1. REMODULIN [Suspect]
     Active Substance: TREPROSTINIL
     Dosage: 1 DOSAGE FORM (0.0105)
     Route: 041
  2. TYVASO [Suspect]
     Active Substance: TREPROSTINIL
     Dosage: UNK, 4X/DAY (12 BREATHS)
     Route: 055
  3. REMODULIN [Suspect]
     Active Substance: TREPROSTINIL
     Dosage: 0.007 MICROGRAM/KILOGRAM
     Route: 041
  4. OPSUMIT [Suspect]
     Active Substance: MACITENTAN
     Dosage: UNK
     Route: 065
  5. TYVASO [Suspect]
     Active Substance: TREPROSTINIL
     Indication: PULMONARY ARTERIAL HYPERTENSION
     Dosage: UNK, 4X/DAY (3-9 BREATHS)
     Route: 055
     Dates: start: 20190925
  6. REVATIO [Suspect]
     Active Substance: SILDENAFIL CITRATE
     Dosage: UNK
     Route: 065
  7. REMODULIN [Suspect]
     Active Substance: TREPROSTINIL
     Indication: PULMONARY ARTERIAL HYPERTENSION
     Dosage: 0.007 MICROGRAM/KILOGRAM
     Route: 042
     Dates: start: 20190802
  8. ELIQUIS [Suspect]
     Active Substance: APIXABAN
     Dosage: UNK
     Dates: start: 2014
  9. ELIQUIS [Suspect]
     Active Substance: APIXABAN
     Dosage: UNK
     Route: 065

REACTIONS (11)
  - Fluid overload [Unknown]
  - Nausea [Unknown]
  - Pulmonary arterial hypertension [Unknown]
  - Vomiting [Unknown]
  - Catheter site extravasation [Unknown]
  - Device related infection [Unknown]
  - Epistaxis [Unknown]
  - Respiratory failure [Unknown]
  - Complication associated with device [Unknown]
  - Condition aggravated [Unknown]
  - Device related thrombosis [Unknown]

NARRATIVE: CASE EVENT DATE: 202002
